FAERS Safety Report 9168480 (Version 1)
Quarter: 2013Q1

REPORT INFORMATION
  Report Type: Other
  Country: GB (occurrence: GB)
  Receive Date: 20130318
  Receipt Date: 20130318
  Transmission Date: 20140127
  Serious: Yes (Other)
  Sender: FDA-Public Use
  Company Number: GB-WATSON-2013-03859

PATIENT
  Sex: Female

DRUGS (17)
  1. CITALOPRAM [Suspect]
     Indication: BIPOLAR DISORDER
     Dosage: 20 MG, UNKNOWN
     Route: 048
     Dates: start: 200703
  2. ZOPICLONE (UNKNOWN) [Suspect]
     Indication: BIPOLAR DISORDER
     Dosage: UNK UNK, UNKNOWN
     Route: 048
     Dates: start: 200703
  3. OLANZAPINE [Concomitant]
     Indication: PRODUCT USED FOR UNKNOWN INDICATION
     Dosage: 10 MG, UNKNOWN
     Route: 065
     Dates: start: 200704, end: 200905
  4. FLUOXETINE [Concomitant]
     Indication: PRODUCT USED FOR UNKNOWN INDICATION
     Dosage: 20 MG, UNKNOWN
     Route: 065
     Dates: start: 200704
  5. DIAZEPAM [Concomitant]
     Indication: PRODUCT USED FOR UNKNOWN INDICATION
     Dosage: UNK UNK, UNKNOWN
     Route: 065
     Dates: start: 200904
  6. QUETIAPINE [Concomitant]
     Indication: PRODUCT USED FOR UNKNOWN INDICATION
     Dosage: 300 MG, UNKNOWN
     Route: 065
     Dates: start: 201302
  7. QUETIAPINE [Concomitant]
     Dosage: 250 MG, UNKNOWN
     Route: 065
     Dates: start: 201301
  8. QUETIAPINE [Concomitant]
     Dosage: 200 MG, UNKNOWN
     Route: 065
     Dates: start: 201212
  9. QUETIAPINE [Concomitant]
     Dosage: 600 MG, BID, 200 MG IN THE MORNING AND 400 MG AT NIGHT
     Route: 065
     Dates: start: 200907
  10. QUETIAPINE [Concomitant]
     Dosage: UNK UNK, UNKNOWN
     Route: 065
     Dates: start: 200905
  11. LITHIUM CARBONATE [Concomitant]
     Indication: PRODUCT USED FOR UNKNOWN INDICATION
     Dosage: 600 MG, DAILY, AT NIGHT
     Route: 065
     Dates: start: 200907
  12. ZUCLOPENTHIXOL DECANOATE [Concomitant]
     Indication: PRODUCT USED FOR UNKNOWN INDICATION
     Dosage: 250 MG, UNKNOWN
     Route: 065
     Dates: start: 200909
  13. TRIHEXYPHENIDYL [Concomitant]
     Indication: PRODUCT USED FOR UNKNOWN INDICATION
     Dosage: 2 MG, BID, MORNING AND NIGHT
     Route: 065
     Dates: start: 200909
  14. ESCITALOPRAM [Concomitant]
     Indication: PRODUCT USED FOR UNKNOWN INDICATION
     Dosage: UNK UNK, UNKNOWN
     Route: 065
     Dates: start: 201001
  15. DOSULEPIN [Concomitant]
     Indication: PRODUCT USED FOR UNKNOWN INDICATION
     Dosage: UNK UNK, UNKNOWN
     Route: 065
     Dates: start: 201007
  16. PHENELZINE [Concomitant]
     Indication: PRODUCT USED FOR UNKNOWN INDICATION
     Dosage: UNK UNK, UNKNOWN
     Route: 065
     Dates: start: 201111
  17. LITHIUM [Concomitant]
     Indication: PRODUCT USED FOR UNKNOWN INDICATION
     Dosage: 400 MG, UNKNOWN
     Route: 065
     Dates: start: 201212

REACTIONS (10)
  - Disorientation [Not Recovered/Not Resolved]
  - Feeling abnormal [Not Recovered/Not Resolved]
  - Amnesia [Recovered/Resolved with Sequelae]
  - Malaise [Not Recovered/Not Resolved]
  - Eating disorder symptom [Not Recovered/Not Resolved]
  - Impaired self-care [Not Recovered/Not Resolved]
  - Hypersomnia [Not Recovered/Not Resolved]
  - Polydipsia [Not Recovered/Not Resolved]
  - Weight increased [Not Recovered/Not Resolved]
  - Unevaluable event [None]
